FAERS Safety Report 6845079-2 (Version None)
Quarter: 2010Q3

REPORT INFORMATION
  Report Type: 
  Country: None (occurrence: None)
  Receive Date: 20100715
  Receipt Date: 20070811
  Transmission Date: 20110219
  Serious: No
  Sender: FDA-Public Use
  Company Number: US-PFIZER INC-2007067658

PATIENT
  Sex: Female
  Weight: 61.4 kg

DRUGS (2)
  1. CHANTIX [Suspect]
     Indication: SMOKING CESSATION THERAPY
     Dates: start: 20070804
  2. COLESTID [Concomitant]
     Indication: BLOOD CHOLESTEROL

REACTIONS (5)
  - ABNORMAL DREAMS [None]
  - FORMICATION [None]
  - INSOMNIA [None]
  - NAUSEA [None]
  - NIGHT SWEATS [None]
